FAERS Safety Report 6203281-7 (Version None)
Quarter: 2009Q2

REPORT INFORMATION
  Report Type: 
  Country: None (occurrence: None)
  Receive Date: 20090522
  Receipt Date: 20090522
  Transmission Date: 20091009
  Serious: Yes (Hospitalization)
  Sender: FDA-Public Use
  Company Number: None

PATIENT
  Sex: Female
  Weight: 86.36 kg

DRUGS (2)
  1. CISPLATIN [Suspect]
     Dosage: 57 MG
  2. ERBITUX [Suspect]
     Dosage: 478 MG

REACTIONS (9)
  - BUNDLE BRANCH BLOCK RIGHT [None]
  - DIARRHOEA [None]
  - ELECTROCARDIOGRAM ST SEGMENT ABNORMAL [None]
  - LEFT ATRIAL DILATATION [None]
  - NAUSEA [None]
  - PULMONARY EMBOLISM [None]
  - RIGHT ATRIAL DILATATION [None]
  - RIGHT VENTRICULAR DYSFUNCTION [None]
  - VOMITING [None]
